FAERS Safety Report 16790244 (Version 1)
Quarter: 2019Q3

REPORT INFORMATION
  Report Type: Spontaneous
  Country: US (occurrence: US)
  Receive Date: 20190910
  Receipt Date: 20190910
  Transmission Date: 20191005
  Serious: Yes (Hospitalization)
  Sender: FDA-Public Use
  Company Number: PHHY2019US208087

PATIENT
  Age: 61 Year
  Sex: Male

DRUGS (8)
  1. WARFARIN [Interacting]
     Active Substance: WARFARIN
     Indication: ATRIAL FIBRILLATION
     Dosage: UNK
     Route: 065
  2. METOPROLOL. [Concomitant]
     Active Substance: METOPROLOL
     Indication: LEFT VENTRICULAR FAILURE
  3. AMIODARONE [Suspect]
     Active Substance: AMIODARONE
     Indication: LEFT VENTRICULAR FAILURE
     Dosage: UNK
     Route: 065
  4. WARFARIN [Interacting]
     Active Substance: WARFARIN
     Indication: LEFT VENTRICULAR FAILURE
  5. DILTIAZEM. [Concomitant]
     Active Substance: DILTIAZEM
     Indication: LEFT VENTRICULAR FAILURE
  6. AMIODARONE [Interacting]
     Active Substance: AMIODARONE
     Indication: ATRIAL FIBRILLATION
  7. METOPROLOL. [Concomitant]
     Active Substance: METOPROLOL
     Indication: ATRIAL FIBRILLATION
     Dosage: UNK
     Route: 065
  8. DILTIAZEM. [Concomitant]
     Active Substance: DILTIAZEM
     Indication: ATRIAL FIBRILLATION
     Dosage: UNK
     Route: 065

REACTIONS (10)
  - Anuria [Unknown]
  - Hepatic enzyme increased [Recovering/Resolving]
  - Jaundice [Unknown]
  - Haemorrhage [Unknown]
  - End stage renal disease [Unknown]
  - Renal tubular necrosis [Unknown]
  - Renal impairment [Unknown]
  - International normalised ratio increased [Unknown]
  - Drug interaction [Unknown]
  - Drug-induced liver injury [Recovering/Resolving]
